FAERS Safety Report 5423357-1 (Version None)
Quarter: 2007Q3

REPORT INFORMATION
  Report Type: 
  Country: None (occurrence: None)
  Receive Date: 20070730
  Receipt Date: 20061215
  Transmission Date: 20080115
  Serious: Yes (Other)
  Sender: FDA-Public Use
  Company Number: 200615789BWH

PATIENT
  Sex: Female

DRUGS (1)
  1. AVELOX [Suspect]
     Indication: DRUG USE FOR UNKNOWN INDICATION
     Dosage: ORAL
     Route: 048

REACTIONS (5)
  - ANAPHYLACTIC SHOCK [None]
  - HYPERHIDROSIS [None]
  - HYPERSENSITIVITY [None]
  - THROAT TIGHTNESS [None]
  - WHEEZING [None]
